FAERS Safety Report 7699467-5 (Version None)
Quarter: 2011Q3

REPORT INFORMATION
  Report Type: 
  Country: None (occurrence: None)
  Receive Date: 20110820
  Receipt Date: 20101230
  Transmission Date: 20111222
  Serious: No
  Sender: FDA-Public Use
  Company Number: US-ALLERGAN-1016909US

PATIENT
  Age: 81 Year
  Sex: Female

DRUGS (3)
  1. SANCTURA XR [Suspect]
     Dosage: 20 MG, QAM
     Route: 048
     Dates: start: 20101201
  2. PREVACID [Concomitant]
     Indication: DYSPEPSIA
     Dosage: 30 MG, SINGLE
     Route: 048
     Dates: start: 20101001
  3. SANCTURA XR [Suspect]
     Indication: POLLAKIURIA
     Dosage: 20 MG, BID
     Route: 048
     Dates: start: 20101210, end: 20101201

REACTIONS (1)
  - DYSPEPSIA [None]
